FAERS Safety Report 17238315 (Version 1)
Quarter: 2020Q1

REPORT INFORMATION
  Report Type: Spontaneous
  Country: IT (occurrence: IT)
  Receive Date: 20200106
  Receipt Date: 20200106
  Transmission Date: 20200409
  Serious: Yes (Other)
  Sender: FDA-Public Use
  Company Number: IT-SAMSUNG BIOEPIS-SB-2019-40116

PATIENT
  Age: 26 Year
  Sex: Female
  Weight: 46 kg

DRUGS (1)
  1. FLIXABI [Suspect]
     Active Substance: INFLIXIMAB
     Indication: COLITIS ULCERATIVE
     Route: 041
     Dates: start: 20190924, end: 20190924

REACTIONS (5)
  - Dyspnoea [Recovered/Resolved]
  - Oedema peripheral [Recovered/Resolved]
  - Hyperaemia [Recovered/Resolved]
  - Clonus [Recovered/Resolved]
  - Face oedema [Recovered/Resolved]

NARRATIVE: CASE EVENT DATE: 20190924
